FAERS Safety Report 10049771 (Version 7)
Quarter: 2014Q2

REPORT INFORMATION
  Report Type: Spontaneous
  Country: ZA (occurrence: ZA)
  Receive Date: 20140401
  Receipt Date: 20140626
  Transmission Date: 20141212
  Serious: Yes (Death, Other)
  Sender: FDA-Public Use
  Company Number: ZA-NOVOPROD-404215

PATIENT
  Age: 62 Year
  Sex: Male
  Weight: 114 kg

DRUGS (6)
  1. VICTOZA [Suspect]
     Indication: TYPE 2 DIABETES MELLITUS
     Dosage: 1.6 MG, QD
     Route: 058
     Dates: end: 2013
  2. VICTOZA [Suspect]
     Indication: WEIGHT CONTROL
  3. NOVORAPID FLEXPEN [Concomitant]
     Indication: TYPE 2 DIABETES MELLITUS
     Dosage: DOSE GOES ACCORING TO HIS SUGAR LEVEL AVERAGE OF 50IU DAILY
     Route: 058
  4. LEVEMIR FLEXPEN [Concomitant]
     Indication: TYPE 2 DIABETES MELLITUS
     Dosage: 20 IU, QD, (20 IU NOCTE)
     Route: 058
  5. GLUCOPHAGE [Concomitant]
     Indication: TYPE 2 DIABETES MELLITUS
     Dosage: UNK
     Route: 065
     Dates: start: 2000
  6. BILOCOR [Concomitant]
     Dosage: UNK

REACTIONS (3)
  - Pancreatic carcinoma [Fatal]
  - Drug ineffective [Unknown]
  - Off label use [Recovered/Resolved]
